FAERS Safety Report 5678392-5 (Version None)
Quarter: 2008Q2

REPORT INFORMATION
  Report Type: 
  Country: None (occurrence: None)
  Receive Date: 20080321
  Receipt Date: 20080311
  Transmission Date: 20081010
  Serious: Yes (Death)
  Sender: FDA-Public Use
  Company Number: 2008006309

PATIENT
  Age: 6 Month
  Sex: Male

DRUGS (3)
  1. BENADRYL [Suspect]
     Dosage: 1/4 TABLET AS NEEDED UP TO TWICE DAILY,ORAL
     Route: 048
  2. ZANTAC [Suspect]
     Indication: GASTROOESOPHAGEAL REFLUX DISEASE
     Dosage: 1/2 TABLET TWICE DAILY (2 IN 1 D),ORAL
     Route: 048
  3. UNISOM [Suspect]
     Indication: INSOMNIA
     Dosage: 1/4 TABLET, ORAL
     Route: 048

REACTIONS (4)
  - DRUG TOXICITY [None]
  - IRRITABILITY [None]
  - PYREXIA [None]
  - RESPIRATORY ARREST [None]
